FAERS Safety Report 9981140 (Version 1)
Quarter: 2014Q1

REPORT INFORMATION
  Report Type: Spontaneous
  Country: US (occurrence: US)
  Receive Date: 20140307
  Receipt Date: 20140307
  Transmission Date: 20141002
  Serious: No
  Sender: FDA-Public Use
  Company Number: US-PFIZER INC-2014066612

PATIENT
  Sex: Female

DRUGS (2)
  1. CHANTIX [Suspect]
     Dosage: UNK
  2. XANAX [Suspect]
     Dosage: 0.125 MG, AS NEEDED (ONCE 1/2 OF A 0.25MG)

REACTIONS (1)
  - Headache [Unknown]
